FAERS Safety Report 4314717-0 (Version None)
Quarter: 2004Q1

REPORT INFORMATION
  Report Type: 
  Country: None (occurrence: None)
  Receive Date: 20040308
  Receipt Date: 20040226
  Transmission Date: 20041129
  Serious: Yes (Disabling)
  Sender: FDA-Public Use
  Company Number: 2003182002GB

PATIENT
  Age: 66 Year
  Sex: Female

DRUGS (1)
  1. XALATAN [Suspect]
     Indication: GLAUCOMA
     Dosage: OPHTHLAMIC
     Route: 047
     Dates: start: 20000210, end: 20030612

REACTIONS (2)
  - ARTHRALGIA [None]
  - JOINT SWELLING [None]
